FAERS Safety Report 21526043 (Version 2)
Quarter: 2023Q1

REPORT INFORMATION
  Report Type: Spontaneous
  Country: ES (occurrence: ES)
  Receive Date: 20221031
  Receipt Date: 20230320
  Transmission Date: 20230418
  Serious: Yes (Other)
  Sender: FDA-Public Use
  Company Number: ES-Almus S.r.l.-ES-NIC-22-00236

PATIENT
  Age: 63 Year
  Sex: Male

DRUGS (3)
  1. SILDENAFIL [Suspect]
     Active Substance: SILDENAFIL
     Indication: Erectile dysfunction
     Dosage: UNK
     Route: 065
  2. SILDENAFIL [Suspect]
     Active Substance: SILDENAFIL
     Dosage: UNK (QUARTER OF A TABLET )
     Route: 065
  3. SILDENAFIL [Suspect]
     Active Substance: SILDENAFIL
     Dosage: UNK (HALF OF THE TABLET )
     Route: 065

REACTIONS (2)
  - Hepatitis toxic [Unknown]
  - Hepatitis cholestatic [Unknown]
